FAERS Safety Report 9702180 (Version 4)
Quarter: 2014Q1

REPORT INFORMATION
  Report Type: Spontaneous
  Country: JP (occurrence: JP)
  Receive Date: 20131121
  Receipt Date: 20140113
  Transmission Date: 20141002
  Serious: Yes (Death, Life-Threatening, Hospitalization)
  Sender: FDA-Public Use
  Company Number: JP-BAYER-2013-131174

PATIENT
  Age: 64 Year
  Sex: Male
  Weight: 55 kg

DRUGS (10)
  1. STIVARGA [Suspect]
     Indication: COLORECTAL CANCER
     Dosage: 160 MG, QD
     Route: 048
     Dates: start: 20131008, end: 20131011
  2. STIVARGA [Suspect]
     Indication: COLORECTAL CANCER
     Dosage: 80 MG, QD
     Route: 048
     Dates: start: 20131021, end: 20131103
  3. FENTANYL CITRATE [Concomitant]
     Indication: COLON CANCER
     Dosage: UNK
     Route: 062
     Dates: start: 20131016, end: 20131128
  4. OXINORM [OXYCODONE HYDROCHLORIDE] [Concomitant]
     Indication: COLON CANCER
     Dosage: DAILY DOSE 5 MG
     Route: 048
     Dates: start: 20130708, end: 20131128
  5. OXYCONTIN [Concomitant]
     Indication: COLON CANCER
     Dosage: UNK
     Route: 048
     Dates: start: 20130708, end: 20131016
  6. DIOVAN [Concomitant]
     Indication: CARDIOVASCULAR EVENT PROPHYLAXIS
     Dosage: DAILY DOSE 80 MG
     Route: 048
     Dates: start: 20130616, end: 20131103
  7. NAIXAN [Concomitant]
     Indication: COLON CANCER
     Dosage: DAILY DOSE 300 MG
     Route: 048
     Dates: start: 201301
  8. NEXIUM [Concomitant]
     Dosage: DAILY DOSE 10 MG
     Route: 048
     Dates: start: 201301
  9. BIOFERMIN [Concomitant]
     Dosage: DAILY DOSE 18 MG
     Route: 048
  10. RINDERON [Concomitant]
     Dosage: DAILY DOSE 2 MG
     Route: 048
     Dates: start: 20131015

REACTIONS (5)
  - Peritonitis [Recovering/Resolving]
  - Gastrointestinal perforation [Recovering/Resolving]
  - Colon cancer metastatic [Fatal]
  - Fatigue [Recovering/Resolving]
  - Dizziness [Recovered/Resolved]
